FAERS Safety Report 5106856-1 (Version None)
Quarter: 2006Q4

REPORT INFORMATION
  Report Type: 
  Country: None (occurrence: None)
  Receive Date: 20060912
  Receipt Date: 20060829
  Transmission Date: 20070319
  Serious: No
  Sender: FDA-Public Use
  Company Number: 2006-144491-NL

PATIENT
  Age: 29 Year
  Sex: Female

DRUGS (2)
  1. NUVARING [Suspect]
     Indication: CONTRACEPTION
     Dosage: DF
     Route: 067
     Dates: start: 20050906
  2. ORTHO EVRA [Suspect]
     Indication: CONTRACEPTION
     Dosage: DF
     Dates: start: 20040101, end: 20050830

REACTIONS (1)
  - DEEP VEIN THROMBOSIS [None]
